FAERS Safety Report 17050759 (Version 1)
Quarter: 2019Q4

REPORT INFORMATION
  Report Type: Report from Study
  Country: US (occurrence: US)
  Receive Date: 20191119
  Receipt Date: 20191119
  Transmission Date: 20200122
  Serious: Yes (Death, Other)
  Sender: FDA-Public Use
  Company Number: US-TAKEDA-2019TUS066109

PATIENT
  Age: 69 Year
  Sex: Male

DRUGS (1)
  1. FEBUXOSTAT. [Suspect]
     Active Substance: FEBUXOSTAT
     Indication: GOUT
     Dosage: UNK
     Route: 065
     Dates: start: 2015

REACTIONS (5)
  - Feeling abnormal [Unknown]
  - Lung neoplasm malignant [Unknown]
  - Death [Fatal]
  - General physical health deterioration [Unknown]
  - Renal failure [Unknown]

NARRATIVE: CASE EVENT DATE: 2016
